FAERS Safety Report 12359085 (Version 1)
Quarter: 2016Q2

REPORT INFORMATION
  Report Type: Spontaneous
  Country: US (occurrence: None)
  Receive Date: 20160511
  Receipt Date: 20160511
  Transmission Date: 20160815
  Serious: Yes (Life-Threatening, Hospitalization, Disabling)
  Sender: FDA-Public Use
  Company Number: None

PATIENT
  Sex: Male
  Weight: 81.65 kg

DRUGS (5)
  1. VIMPAT [Suspect]
     Active Substance: LACOSAMIDE
     Indication: EPILEPSY
     Route: 048
     Dates: start: 20151101, end: 20160504
  2. KEPPRA [Concomitant]
     Active Substance: LEVETIRACETAM
  3. HYTRIN [Concomitant]
     Active Substance: TERAZOSIN HYDROCHLORIDE
  4. GABAPENTIN. [Concomitant]
     Active Substance: GABAPENTIN
  5. URECHOLINE [Concomitant]
     Active Substance: BETHANECHOL CHLORIDE

REACTIONS (9)
  - Thrombosis [None]
  - Hypothermia [None]
  - Platelet count decreased [None]
  - Renal impairment [None]
  - Heart rate decreased [None]
  - Multiple organ dysfunction syndrome [None]
  - Dysphagia [None]
  - Oxygen saturation decreased [None]
  - Hyperhidrosis [None]
